FAERS Safety Report 4358001-8 (Version None)
Quarter: 2004Q2

REPORT INFORMATION
  Report Type: 
  Country: None (occurrence: None)
  Receive Date: 20040510
  Receipt Date: 20040422
  Transmission Date: 20050107
  Serious: Yes (Hospitalization)
  Sender: FDA-Public Use
  Company Number: 193617

PATIENT
  Age: 42 Year
  Sex: Male
  Weight: 86.1834 kg

DRUGS (19)
  1. AVONEX [Suspect]
     Indication: MULTIPLE SCLEROSIS
     Dosage: 30 MCG QW IM
     Route: 030
     Dates: start: 19960101, end: 20030801
  2. AVONEX [Suspect]
     Indication: MULTIPLE SCLEROSIS
     Dosage: 30 MCG QW IM
     Route: 030
     Dates: start: 20030801
  3. SOLU-MEDROL [Concomitant]
  4. METHOTREXATE [Concomitant]
  5. PRILOSEC [Concomitant]
  6. BACLOFEN [Concomitant]
  7. VALIUM [Concomitant]
  8. ULTRAM [Concomitant]
  9. ZANAFLEX [Concomitant]
  10. STEROIDS (NOS) [Concomitant]
  11. FIORICET [Concomitant]
  12. TIGAN [Concomitant]
  13. WELLBUTRIN SR [Concomitant]
  14. LEXAPRO [Concomitant]
  15. MULTI-VITAMINS [Concomitant]
  16. CELEBREX [Concomitant]
  17. LIPITOR [Concomitant]
  18. ADVAIR DISKUS 100/50 [Concomitant]
  19. NEBULIZER TREATMENT (NOS) [Concomitant]

REACTIONS (13)
  - AIRWAY COMPLICATION OF ANAESTHESIA [None]
  - DEPRESSION [None]
  - DRY SKIN [None]
  - HYPOAESTHESIA [None]
  - INFLUENZA LIKE ILLNESS [None]
  - INJECTION SITE PRURITUS [None]
  - INJECTION SITE REACTION [None]
  - INTERVERTEBRAL DISC DISORDER [None]
  - LARYNGITIS [None]
  - PARAESTHESIA [None]
  - PNEUMONIA ASPIRATION [None]
  - SKIN DESQUAMATION [None]
  - VOCAL CORD PARALYSIS [None]
